FAERS Safety Report 8923508 (Version 1)
Quarter: 2012Q4

REPORT INFORMATION
  Report Type: 
  Country: US (occurrence: US)
  Receive Date: 20121123
  Receipt Date: 20121123
  Transmission Date: 20130627
  Serious: No
  Sender: FDA-Public Use
  Company Number: US-BAYER-2012-115019

PATIENT

DRUGS (2)
  1. ALEVE CAPLET/TABLET,MIDOL EXTENDED RELIEF CAPLET [Suspect]
     Indication: PAIN OF LOWER EXTREMITIES
     Dosage: UNK UNK, Q2HR
  2. ACETAMINOPHEN [Concomitant]

REACTIONS (2)
  - Drug ineffective [None]
  - Overdose [None]
